FAERS Safety Report 5207313-4 (Version None)
Quarter: 2007Q1

REPORT INFORMATION
  Report Type: 
  Country: None (occurrence: None)
  Receive Date: 20070110
  Receipt Date: 20061225
  Transmission Date: 20070707
  Serious: Yes (Other)
  Sender: FDA-Public Use
  Company Number: 2006JP003831

PATIENT
  Age: 57 Year
  Sex: Female
  Weight: 54 kg

DRUGS (20)
  1. FUNGUARD (MICAFUNGIN) INJECTION [Suspect]
     Indication: FUNGAL INFECTION
     Dosage: 150 MG, IV DRIP; SEE IMAGE
     Route: 041
     Dates: start: 20060617, end: 20060625
  2. FUNGUARD (MICAFUNGIN) INJECTION [Suspect]
     Indication: FUNGAL INFECTION
     Dosage: 150 MG, IV DRIP; SEE IMAGE
     Route: 041
     Dates: start: 20060626, end: 20060711
  3. AZACTAM [Suspect]
     Indication: DRUG USE FOR UNKNOWN INDICATION
     Dosage: 4 G
     Dates: start: 20060617, end: 20060625
  4. CYLOCIDE(CYTARABINE) INJECTION [Suspect]
     Indication: DRUG USE FOR UNKNOWN INDICATION
     Dosage: SEE IMAGE
     Dates: end: 20060616
  5. CYLOCIDE(CYTARABINE) INJECTION [Suspect]
     Indication: DRUG USE FOR UNKNOWN INDICATION
     Dosage: SEE IMAGE
     Dates: start: 20060617, end: 20060619
  6. DALACIN-S (CLINDAMYCIN) INJECTION [Suspect]
     Indication: DRUG USE FOR UNKNOWN INDICATION
     Dosage: 2400 MG; SE EIMAGE
     Dates: start: 20060617, end: 20060619
  7. DALACIN-S (CLINDAMYCIN) INJECTION [Suspect]
     Indication: DRUG USE FOR UNKNOWN INDICATION
     Dosage: 2400 MG; SE EIMAGE
     Dates: start: 20060620, end: 20060620
  8. VANCOMYCIN [Suspect]
     Indication: DRUG USE FOR UNKNOWN INDICATION
     Dosage: 2 G; SEE IMAGE
     Dates: start: 20060620, end: 20060702
  9. VANCOMYCIN [Suspect]
     Indication: DRUG USE FOR UNKNOWN INDICATION
     Dosage: 2 G; SEE IMAGE
     Dates: start: 20060703, end: 20060703
  10. TAZOCIN(PIPERACILLIN SODIUM, TAZOBACTAM SODIUM) INJECTION [Suspect]
     Indication: DRUG USE FOR UNKNOWN INDICATION
     Dosage: 5 G
     Dates: start: 20060626, end: 20060705
  11. DIFLUCAN [Concomitant]
  12. MEROPEN (MEROPENEM) [Concomitant]
  13. EXACIN (ISEPAMICIN SULFATE) [Concomitant]
  14. HABEKACIN (ARBEKACIN) [Concomitant]
  15. FOY (GABEXATE MESILATE) [Concomitant]
  16. ZOFRAN [Concomitant]
  17. NEUPOGEN [Concomitant]
  18. PROTECADIN (LAFUTIDINE) [Concomitant]
  19. BACTAR (SULFAMETHOXAZOLE, TRIMETHOPRIM) [Concomitant]
  20. CIPROXAN (CIPROFLOXACIN HYDROCHLORIDE) [Concomitant]

REACTIONS (10)
  - ALANINE AMINOTRANSFERASE INCREASED [None]
  - ASPARTATE AMINOTRANSFERASE INCREASED [None]
  - HEPATIC FUNCTION ABNORMAL [None]
  - NASOPHARYNGEAL DISORDER [None]
  - NAUSEA [None]
  - PAIN [None]
  - RASH [None]
  - SEPTIC SHOCK [None]
  - VOMITING [None]
  - WHITE BLOOD CELL COUNT DECREASED [None]
